FAERS Safety Report 4741110-9 (Version None)
Quarter: 2005Q3

REPORT INFORMATION
  Report Type: 
  Country: None (occurrence: None)
  Receive Date: 20050808
  Receipt Date: 20050727
  Transmission Date: 20060218
  Serious: Yes (Life-Threatening, Hospitalization, Other)
  Sender: FDA-Public Use
  Company Number: US_0507120424

PATIENT
  Age: 63 Year
  Sex: Female
  Weight: 75 kg

DRUGS (12)
  1. HUMULIN N [Suspect]
     Indication: DIABETES MELLITUS
     Dosage: 50 U/DAY
     Dates: start: 19980101, end: 20000301
  2. REGULAR INSULIN [Suspect]
     Indication: DIABETES MELLITUS
     Dates: start: 20000301
  3. ILETIN [Suspect]
     Indication: DIABETES MELLITUS
     Dosage: 55 U/DAY
     Dates: start: 20000301
  4. NPH ILETIN I (BEEF-PORK) [Suspect]
     Indication: DIABETES MELLITUS
     Dates: end: 19980101
  5. ILETIN-BEF/PORK REGULAR INSULIN (INSULIN, ANIMAL) [Suspect]
     Indication: DIABETES MELLITUS
     Dates: end: 19980101
  6. ... [Suspect]
  7. HUMULIN 70/30 [Suspect]
     Indication: DIABETES MELLITUS
  8. . [Concomitant]
  9. . [Concomitant]
  10. . [Concomitant]
  11. . [Concomitant]
  12. . [Concomitant]

REACTIONS (26)
  - ABNORMAL BEHAVIOUR [None]
  - ANXIETY [None]
  - ARTERIAL DISORDER [None]
  - BLOOD GLUCOSE FLUCTUATION [None]
  - BLOOD GLUCOSE INCREASED [None]
  - BREAST CANCER FEMALE [None]
  - CARDIAC ARREST [None]
  - CARDIO-RESPIRATORY ARREST [None]
  - CEREBROVASCULAR ACCIDENT [None]
  - CONFUSIONAL STATE [None]
  - CORONARY ARTERY DISEASE [None]
  - DISORIENTATION [None]
  - EMOTIONAL DISTRESS [None]
  - FEELING COLD [None]
  - HALLUCINATION [None]
  - HEADACHE [None]
  - HYPOAESTHESIA [None]
  - HYPOGLYCAEMIA UNAWARENESS [None]
  - LOSS OF CONSCIOUSNESS [None]
  - MALAISE [None]
  - MORBID THOUGHTS [None]
  - MYOCARDIAL INFARCTION [None]
  - ORAL INTAKE REDUCED [None]
  - PROCEDURAL COMPLICATION [None]
  - VISION BLURRED [None]
  - VOMITING [None]
